FAERS Safety Report 13046130 (Version 2)
Quarter: 2020Q2

REPORT INFORMATION
  Report Type: Report from Study
  Country: AU (occurrence: AU)
  Receive Date: 20161220
  Receipt Date: 20200515
  Transmission Date: 20200713
  Serious: Yes (Other)
  Sender: FDA-Public Use
  Company Number: AU-JNJFOC-20161002283

PATIENT
  Age: 76 Year
  Sex: Male

DRUGS (2)
  1. REMICADE [Suspect]
     Active Substance: INFLIXIMAB
     Indication: COLITIS ULCERATIVE
     Route: 042
     Dates: start: 20160912, end: 20160915
  2. REMICADE [Suspect]
     Active Substance: INFLIXIMAB
     Route: 042
     Dates: start: 20160927

REACTIONS (8)
  - Urticaria [Not Recovered/Not Resolved]
  - Pustule [Recovering/Resolving]
  - Pain in extremity [Recovering/Resolving]
  - Tuberculosis [Unknown]
  - Rectal haemorrhage [Unknown]
  - Arthropod bite [Unknown]
  - Diarrhoea [Unknown]
  - Peripheral swelling [Unknown]

NARRATIVE: CASE EVENT DATE: 201609
